FAERS Safety Report 7013708-9 (Version None)
Quarter: 2010Q3

REPORT INFORMATION
  Report Type: 
  Country: None (occurrence: None)
  Receive Date: 20100924
  Receipt Date: 20100920
  Transmission Date: 20110219
  Serious: Yes (Other)
  Sender: FDA-Public Use
  Company Number: US-TEVA-249206USA

PATIENT
  Sex: Male

DRUGS (6)
  1. PARAGARD T 380A [Suspect]
     Indication: CONTRACEPTION
     Route: 015
     Dates: start: 20040101
  2. POTASSIUM [Concomitant]
     Indication: BLOOD POTASSIUM DECREASED
     Dates: start: 20091001
  3. HYDROCHLOROTHIAZIDE [Concomitant]
     Dates: start: 20091001
  4. PRENATAL VITAMINS [Concomitant]
     Dates: start: 20100218
  5. SIMVASTATIN [Concomitant]
     Indication: BLOOD CHOLESTEROL
     Dates: start: 20071201, end: 20100218
  6. PHENTERMINE [Concomitant]
     Indication: WEIGHT DECREASED
     Dates: start: 20080101, end: 20100218

REACTIONS (1)
  - JAUNDICE [None]
